FAERS Safety Report 11214825 (Version 1)
Quarter: 2015Q2

REPORT INFORMATION
  Report Type: Spontaneous
  Country: US (occurrence: None)
  Receive Date: 20150622
  Receipt Date: 20150622
  Transmission Date: 20150821
  Serious: No
  Sender: FDA-Public Use
  Company Number: None

PATIENT
  Age: 71 Year
  Sex: Female

DRUGS (1)
  1. ACTEMRA [Suspect]
     Active Substance: TOCILIZUMAB
     Dosage: 162 MG  ONCE A WEEK  SUBCUTANEOUS
     Route: 058
     Dates: start: 20150420

REACTIONS (5)
  - Blood glucose increased [None]
  - Asthenia [None]
  - Eye haemorrhage [None]
  - Dizziness [None]
  - Blood count abnormal [None]

NARRATIVE: CASE EVENT DATE: 20150610
